FAERS Safety Report 17716328 (Version 4)
Quarter: 2020Q3

REPORT INFORMATION
  Report Type: Other
  Country: DE (occurrence: DE)
  Receive Date: 20200428
  Receipt Date: 20200812
  Transmission Date: 20201102
  Serious: Yes (Other)
  Sender: FDA-Public Use
  Company Number: DE-ROCHE-2588771

PATIENT
  Age: 42 Year
  Sex: Female

DRUGS (9)
  1. PREDNISOLONE. [Suspect]
     Active Substance: PREDNISOLONE
     Indication: PREMEDICATION
     Route: 065
  2. OCREVUS [Suspect]
     Active Substance: OCRELIZUMAB
     Route: 042
     Dates: start: 201911
  3. KORODIN [Concomitant]
     Active Substance: CAMPHOR (SYNTHETIC)\MENTHOL
     Dosage: AS REQUIRED
  4. OCREVUS [Suspect]
     Active Substance: OCRELIZUMAB
     Dosage: 4TH INFUSION
     Route: 042
     Dates: start: 202005
  5. URBASON [Concomitant]
     Active Substance: METHYLPREDNISOLONE
     Indication: PREMEDICATION
  6. OCREVUS [Suspect]
     Active Substance: OCRELIZUMAB
     Route: 042
     Dates: start: 201905
  7. OCREVUS [Suspect]
     Active Substance: OCRELIZUMAB
     Indication: PRIMARY PROGRESSIVE MULTIPLE SCLEROSIS
     Route: 042
     Dates: start: 201905
  8. OCREVUS [Suspect]
     Active Substance: OCRELIZUMAB
     Dosage: 5TH INFUSION
     Route: 042
     Dates: start: 202005
  9. THOMAPYRIN [Concomitant]

REACTIONS (7)
  - Fatigue [Recovered/Resolved]
  - Heart rate increased [Recovered/Resolved]
  - Extrasystoles [Recovered/Resolved]
  - Palpitations [Recovered/Resolved]
  - Cardiovascular disorder [Unknown]
  - Arrhythmia [Recovered/Resolved]
  - Blood pressure increased [Recovered/Resolved]

NARRATIVE: CASE EVENT DATE: 201905
